FAERS Safety Report 7673853-1 (Version None)
Quarter: 2011Q3

REPORT INFORMATION
  Report Type: 
  Country: None (occurrence: None)
  Receive Date: 20110808
  Receipt Date: 20110722
  Transmission Date: 20111222
  Serious: Yes (Hospitalization, Other)
  Sender: FDA-Public Use
  Company Number: 2011MA001733

PATIENT
  Sex: Female
  Weight: 90.7194 kg

DRUGS (51)
  1. FLOVENT [Concomitant]
  2. ALLEGRA [Concomitant]
  3. INDOCIN [Concomitant]
  4. NAPROSYN [Concomitant]
  5. SKELAXIN [Concomitant]
  6. AZITHROMYCIN [Concomitant]
  7. VALIUM [Concomitant]
  8. IBUPROFEN [Concomitant]
  9. DILANTIN [Concomitant]
  10. GABAPENTIN [Concomitant]
  11. CITALOPRAM HYDROBROMIDE [Concomitant]
  12. LISINOPRIL [Concomitant]
  13. AMOXIL [Concomitant]
  14. PREDNISONE [Concomitant]
  15. DESYREL [Concomitant]
  16. PHENOBARBITAL TAB [Concomitant]
  17. MOTRIN [Concomitant]
  18. TRAMADOL HCL [Concomitant]
  19. CIPROFLOXACIN [Concomitant]
  20. PHENYTOIN [Concomitant]
  21. PANATOL [Concomitant]
  22. ERYTHROMYCIN [Concomitant]
  23. FERROUS SULFATE TAB [Concomitant]
  24. SOMA [Concomitant]
  25. MIRAPEX [Concomitant]
  26. PRILOSEC [Concomitant]
  27. TRIAZOLAM [Concomitant]
  28. HYDROCHLOROTHIAZIDE [Concomitant]
  29. THIORIDAZINE HCL [Concomitant]
  30. METOCLOPRAMIDE [Suspect]
     Indication: GASTRIC DISORDER
     Dosage: 10 MG, QID, PO
     Route: 048
     Dates: start: 20070601, end: 20100301
  31. NEXIUM [Concomitant]
  32. DOMPERIDONE [Concomitant]
  33. DIAZEPAM [Concomitant]
  34. NASONEX [Concomitant]
  35. BIAXIN [Concomitant]
  36. CYCLESSA [Concomitant]
  37. PENICILLIN [Concomitant]
  38. ZANTAC [Concomitant]
  39. PROTONIX [Concomitant]
  40. SEREVENT [Concomitant]
  41. RYNATAN [Concomitant]
  42. FLEXERIL [Concomitant]
  43. BACTRIM [Concomitant]
  44. ALPRAZOLAM [Concomitant]
  45. AMBIEN [Concomitant]
  46. ALBUTEROL SULFATE AUTOHALER [Concomitant]
  47. PROVERA [Concomitant]
  48. PEPCID [Concomitant]
  49. ACIPHEX [Concomitant]
  50. MELLARIL [Concomitant]
  51. GAS-X [Concomitant]

REACTIONS (71)
  - ATAXIA [None]
  - ORAL PAIN [None]
  - DYSKINESIA [None]
  - NAUSEA [None]
  - HEADACHE [None]
  - PLEURAL EFFUSION [None]
  - EMOTIONAL DISORDER [None]
  - INJURY [None]
  - CONVULSION [None]
  - SINUSITIS [None]
  - CONJUNCTIVITIS [None]
  - PYREXIA [None]
  - PHARYNGITIS [None]
  - AMENORRHOEA [None]
  - ATELECTASIS [None]
  - LYMPHADENITIS [None]
  - DEPRESSION [None]
  - FAMILY STRESS [None]
  - EXTRAPYRAMIDAL DISORDER [None]
  - RESTLESS LEGS SYNDROME [None]
  - DYSARTHRIA [None]
  - DERMATITIS CONTACT [None]
  - HAEMATOCHEZIA [None]
  - CHEST DISCOMFORT [None]
  - DYSPNOEA [None]
  - VOMITING [None]
  - HEPATIC STEATOSIS [None]
  - URINARY INCONTINENCE [None]
  - HALLUCINATION, AUDITORY [None]
  - BRONCHITIS [None]
  - BACK PAIN [None]
  - MASTOPTOSIS [None]
  - MENSTRUATION IRREGULAR [None]
  - HAEMATEMESIS [None]
  - COSTOCHONDRITIS [None]
  - LOSS OF CONSCIOUSNESS [None]
  - CONSTIPATION [None]
  - RASH [None]
  - ECONOMIC PROBLEM [None]
  - NECK PAIN [None]
  - TARDIVE DYSKINESIA [None]
  - PAIN [None]
  - MUSCLE SPASMS [None]
  - MYALGIA [None]
  - FATIGUE [None]
  - INSOMNIA [None]
  - ANAEMIA [None]
  - HEAD INJURY [None]
  - TREATMENT NONCOMPLIANCE [None]
  - CONDITION AGGRAVATED [None]
  - MUSCLE TWITCHING [None]
  - CELLULITIS [None]
  - GASTRITIS [None]
  - DEHYDRATION [None]
  - ARTHRALGIA [None]
  - DRUG LEVEL BELOW THERAPEUTIC [None]
  - URINARY TRACT INFECTION [None]
  - DRY MOUTH [None]
  - FALL [None]
  - OROPHARYNGEAL PAIN [None]
  - PAIN IN EXTREMITY [None]
  - RHINITIS ALLERGIC [None]
  - BRONCHIAL HYPERREACTIVITY [None]
  - ABDOMINAL PAIN UPPER [None]
  - DIZZINESS [None]
  - FLAT AFFECT [None]
  - DRUG LEVEL INCREASED [None]
  - MUSCLE TIGHTNESS [None]
  - INFECTIOUS MONONUCLEOSIS [None]
  - EAR PAIN [None]
  - INFERTILITY [None]
